FAERS Safety Report 8607400 (Version 4)
Quarter: 2014Q1

REPORT INFORMATION
  Report Type: Spontaneous
  Country: US (occurrence: US)
  Receive Date: 20120611
  Receipt Date: 20140131
  Transmission Date: 20141002
  Serious: Yes (Disabling, Other)
  Sender: FDA-Public Use
  Company Number: US-ASTRAZENECA-2012SE34893

PATIENT
  Age: 55 Year
  Sex: Female
  Weight: 116.1 kg

DRUGS (17)
  1. NEXIUM [Suspect]
     Indication: GASTROOESOPHAGEAL REFLUX DISEASE
     Route: 048
  2. NEXIUM [Suspect]
     Indication: GASTROOESOPHAGEAL REFLUX DISEASE
     Route: 048
     Dates: start: 20060626
  3. NEXIUM [Suspect]
     Indication: GASTROOESOPHAGEAL REFLUX DISEASE
     Route: 048
     Dates: start: 20120601
  4. PRILOSEC [Suspect]
     Indication: GASTROOESOPHAGEAL REFLUX DISEASE
     Route: 048
  5. PRILOSEC [Suspect]
     Indication: GASTROOESOPHAGEAL REFLUX DISEASE
     Route: 048
     Dates: start: 20070417, end: 20070717
  6. PRILOSEC [Suspect]
     Indication: GASTROOESOPHAGEAL REFLUX DISEASE
     Route: 048
     Dates: start: 20090730
  7. PRILOSEC [Suspect]
     Indication: GASTROOESOPHAGEAL REFLUX DISEASE
     Route: 048
     Dates: start: 2010
  8. PRILOSEC [Suspect]
     Indication: GASTROOESOPHAGEAL REFLUX DISEASE
     Dosage: ONE TO TWO TABLET DAILY
     Route: 048
     Dates: start: 2010
  9. ALLEGRA [Concomitant]
     Route: 048
  10. GLIPIZIDE [Concomitant]
     Route: 048
     Dates: start: 20120402
  11. CLONIDINE [Concomitant]
     Route: 048
  12. CYCLOBENZAPRINE [Concomitant]
     Route: 048
     Dates: start: 20020826
  13. LEVOTHROID [Concomitant]
     Route: 048
     Dates: start: 20020522
  14. PREDNISONE [Concomitant]
     Route: 048
     Dates: start: 20030219
  15. HYDROCODONE/APAP [Concomitant]
     Indication: PAIN
     Dosage: 7.5/500 MG
     Route: 048
  16. ULTRACET [Concomitant]
     Route: 048
     Dates: start: 20040422
  17. JANUVIA [Concomitant]
     Route: 048
     Dates: start: 20120503

REACTIONS (13)
  - Arthritis [Unknown]
  - Spinal osteoarthritis [Unknown]
  - Intervertebral disc degeneration [Unknown]
  - Osteoporosis [Unknown]
  - Multiple fractures [Unknown]
  - Exostosis [Unknown]
  - Rotator cuff syndrome [Unknown]
  - Type 2 diabetes mellitus [Unknown]
  - Hyperparathyroidism [Unknown]
  - Vitamin D deficiency [Unknown]
  - Osteoarthritis [Unknown]
  - Foot deformity [Unknown]
  - Hypothyroidism [Unknown]
